FAERS Safety Report 7573299-0 (Version None)
Quarter: 2011Q2

REPORT INFORMATION
  Report Type: 
  Country: None (occurrence: None)
  Receive Date: 20110627
  Receipt Date: 20110614
  Transmission Date: 20111010
  Serious: Yes (Other)
  Sender: FDA-Public Use
  Company Number: PHHY2011BR54196

PATIENT
  Age: 72 Year
  Sex: Female

DRUGS (2)
  1. ZOMETA [Suspect]
     Route: 042
  2. BISPHOSPHONATES [Concomitant]

REACTIONS (5)
  - SOFT TISSUE INFLAMMATION [None]
  - IMPAIRED HEALING [None]
  - OSTEONECROSIS OF JAW [None]
  - EXPOSED BONE IN JAW [None]
  - OSTEOSCLEROSIS [None]
